FAERS Safety Report 21064248 (Version 1)
Quarter: 2022Q3

REPORT INFORMATION
  Report Type: Other
  Country: US (occurrence: US)
  Receive Date: 20220711
  Receipt Date: 20220711
  Transmission Date: 20221027
  Serious: Yes (Other)
  Sender: FDA-Public Use
  Company Number: US-UPSHER-SMITH LABORATORIES, LLC-2022USL00392

PATIENT
  Age: 56 Year
  Sex: Female
  Weight: 57.143 kg

DRUGS (14)
  1. MORPHINE SULFATE [Suspect]
     Active Substance: MORPHINE SULFATE
     Indication: Pain
     Dosage: 60 MG, 1X/DAY
     Route: 048
     Dates: start: 20220310, end: 20220326
  2. MORPHINE SULFATE [Suspect]
     Active Substance: MORPHINE SULFATE
     Dosage: 30 MG, 1X/DAY
     Route: 048
     Dates: start: 20220327, end: 20220327
  3. HYDROCORTISONE [Suspect]
     Active Substance: HYDROCORTISONE
     Indication: Addison^s disease
     Dosage: 10 MG IN THE MORNING, 5 MG AT NOON, AND 5 MG AT 4 PM
  4. NEURONTIN [Concomitant]
     Active Substance: GABAPENTIN
     Dosage: 300 MG, 1X/DAYAT NIGHT
  5. ELAVIL [Concomitant]
     Active Substance: AMITRIPTYLINE HYDROCHLORIDE
     Dosage: 10 MG, 1X/DAY, AT NIGHT WITH GABAPENTIN AND REMERON
  6. XANAX [Concomitant]
     Active Substance: ALPRAZOLAM
  7. RESTORIL [Concomitant]
     Active Substance: TEMAZEPAM
     Dosage: 30
  8. NORCO [Concomitant]
     Active Substance: ACETAMINOPHEN\HYDROCODONE BITARTRATE
     Dosage: RESCUE
  9. REMEREON [Concomitant]
     Dosage: 15 MG ALTERNATING WITH 30 MG THE NEXT NIGHT
  10. MIDODRINE [Concomitant]
     Active Substance: MIDODRINE
     Dosage: 5 MG, 1 TO 4 TIMES PER DAY IF UNABLE TO GET HER PRESSURE U BY OTHER MEANS
  11. ADDERALL [Concomitant]
     Active Substance: AMPHETAMINE ASPARTATE\AMPHETAMINE SULFATE\DEXTROAMPHETAMINE SACCHARATE\DEXTROAMPHETAMINE SULFATE
     Dosage: 20 MG, 2X/DAY AT LIKE 8 AM  AND NOON
  12. MAXALT [Concomitant]
     Active Substance: RIZATRIPTAN BENZOATE
     Dosage: 10 MG UNDER THE TONGUE FOR STORM MIGRAINE OCCIPITAL NEURALGIA
     Route: 060
  13. IV FLUID INFUSIONS [Concomitant]
     Dosage: IV FLUID INFUSIONS 1X/DAILY
  14. GABAPENTIN [Concomitant]
     Active Substance: GABAPENTIN

REACTIONS (27)
  - Foot fracture [Not Recovered/Not Resolved]
  - Clavicle fracture [Not Recovered/Not Resolved]
  - Syncope [Recovered/Resolved]
  - Weight decreased [Recovered/Resolved]
  - Blood glucose increased [Recovered/Resolved]
  - Drug interaction [Recovered/Resolved]
  - Sudden onset of sleep [Recovered/Resolved]
  - Retching [Recovered/Resolved]
  - Poor quality sleep [Recovered/Resolved]
  - Feeding disorder [Recovered/Resolved]
  - Autonomic nervous system imbalance [Recovered/Resolved]
  - Pain [Recovered/Resolved]
  - Feeling cold [Recovered/Resolved]
  - Vagus nerve disorder [Recovered/Resolved]
  - Postural orthostatic tachycardia syndrome [Recovered/Resolved]
  - Hypotension [Recovered/Resolved]
  - Hypoxia [Recovered/Resolved]
  - Malaise [Unknown]
  - Dizziness [Recovered/Resolved]
  - Nausea [Recovered/Resolved]
  - Headache [Recovered/Resolved]
  - Drug withdrawal syndrome [Recovered/Resolved]
  - Decreased appetite [Recovered/Resolved]
  - Asthenia [Recovered/Resolved]
  - Diarrhoea [Recovered/Resolved]
  - Inappropriate schedule of product discontinuation [Recovered/Resolved]
  - Wrong technique in product usage process [Recovered/Resolved]

NARRATIVE: CASE EVENT DATE: 20220301
